FAERS Safety Report 5088919-2 (Version None)
Quarter: 2006Q3

REPORT INFORMATION
  Report Type: 
  Country: None (occurrence: None)
  Receive Date: 20060824
  Receipt Date: 20060824
  Transmission Date: 20061208
  Serious: Yes (Hospitalization)
  Sender: FDA-Public Use
  Company Number: None

PATIENT
  Age: 54 Year
  Sex: Female
  Weight: 68.0396 kg

DRUGS (11)
  1. PIROXICAM [Suspect]
     Dosage: 20 MG DAILY PO
     Route: 048
     Dates: start: 20050601, end: 20060820
  2. ALBUTEROL SULFATE AND IPRATROPIUM BROMIDE [Concomitant]
  3. ALPRAZOLAM [Concomitant]
  4. FLUNISOLIDE [Concomitant]
  5. FORMOTEROL [Concomitant]
  6. HYDROCODONE BITARTRATE [Concomitant]
  7. MOMETASONE [Concomitant]
  8. NIFEDIPINE [Concomitant]
  9. PAROXETINE HCL [Concomitant]
  10. PIROXICAM [Concomitant]
  11. SODIUM CHLORIDE [Concomitant]

REACTIONS (1)
  - GASTRIC ULCER HAEMORRHAGE [None]
